FAERS Safety Report 14159253 (Version 1)
Quarter: 2017Q4

REPORT INFORMATION
  Report Type: Spontaneous
  Country: DE (occurrence: DE)
  Receive Date: 20171103
  Receipt Date: 20171103
  Transmission Date: 20180321
  Serious: No
  Sender: FDA-Public Use
  Company Number: DE-BIOGEN-2017BV000392

PATIENT
  Sex: Male

DRUGS (1)
  1. ALPROLIX [Suspect]
     Active Substance: EFTRENONACOG ALFA
     Indication: FACTOR IX DEFICIENCY
     Route: 042
     Dates: start: 20170329

REACTIONS (4)
  - Malaise [Recovered/Resolved]
  - Feeling hot [Recovered/Resolved]
  - Anxiety [Recovered/Resolved]
  - Flushing [Recovered/Resolved]
